FAERS Safety Report 8057295-5 (Version None)
Quarter: 2012Q1

REPORT INFORMATION
  Report Type: 
  Country: None (occurrence: None)
  Receive Date: 20120119
  Receipt Date: 20120118
  Transmission Date: 20120608
  Serious: Yes (Other)
  Sender: FDA-Public Use
  Company Number: PHFR2011IE05705

PATIENT
  Sex: Male

DRUGS (5)
  1. VALPROATE SODIUM [Concomitant]
     Dosage: 1200 UKN, UNK
     Route: 048
  2. CLOZARIL [Suspect]
     Dosage: 500 MG, DAILY
     Route: 048
     Dates: start: 19971201
  3. TEMAZEPAM [Concomitant]
     Indication: INSOMNIA
     Dosage: 10 MG, DAILY
  4. PAROXETINE [Concomitant]
     Indication: INSOMNIA
     Dosage: 40 UKN
  5. CLOZARIL [Suspect]
     Indication: SCHIZOPHRENIA
     Route: 048
     Dates: start: 19950628

REACTIONS (2)
  - RED BLOOD CELL COUNT INCREASED [None]
  - HAEMOGLOBIN INCREASED [None]
